FAERS Safety Report 21855760 (Version 1)
Quarter: 2023Q1

REPORT INFORMATION
  Report Type: Spontaneous
  Country: US (occurrence: None)
  Receive Date: 20230112
  Receipt Date: 20230112
  Transmission Date: 20230417
  Serious: Yes (Hospitalization)
  Sender: FDA-Public Use
  Company Number: None

PATIENT
  Age: 59 Year
  Sex: Male

DRUGS (8)
  1. MYCOPHENOLIC ACID [Suspect]
     Active Substance: MYCOPHENOLIC ACID
     Indication: Renal transplant
     Dosage: FREQUENCY : TWICE A DAY;?
     Route: 048
     Dates: start: 20200320
  2. ENVARSUS XR [Suspect]
     Active Substance: TACROLIMUS
     Indication: Renal transplant
     Dosage: FREQUENCY : DAILY;?
     Route: 048
     Dates: start: 20200320
  3. ASPIRIN [Concomitant]
     Active Substance: ASPIRIN
     Dates: start: 20200520
  4. Diltiazem ER 300 mg [Concomitant]
     Dates: start: 20201025
  5. Prednison 5 mg [Concomitant]
     Dates: start: 20200607
  6. Sodium Bicarbonate 650 mg [Concomitant]
     Dates: start: 20221017
  7. TAMSULOSIN [Concomitant]
     Active Substance: TAMSULOSIN
     Dates: start: 20201017
  8. Vitamin D 50,000 U [Concomitant]
     Dates: start: 20201017

REACTIONS (1)
  - Hospitalisation [None]

NARRATIVE: CASE EVENT DATE: 20230112
